FAERS Safety Report 7902504-3 (Version None)
Quarter: 2011Q4

REPORT INFORMATION
  Report Type: 
  Country: None (occurrence: None)
  Receive Date: 20111108
  Receipt Date: 20111026
  Transmission Date: 20120403
  Serious: Yes (Life-Threatening, Hospitalization, Other)
  Sender: FDA-Public Use
  Company Number: DE-ELI_LILLY_AND_COMPANY-DE201110007113

PATIENT
  Sex: Female

DRUGS (3)
  1. FORTEO [Suspect]
     Indication: OSTEOPOROSIS
     Dosage: UNK, QD
     Route: 058
     Dates: start: 20101025
  2. DIURETICS [Concomitant]
     Dosage: UNK, PRN
  3. CORTISONE ACETATE [Concomitant]
     Dosage: 2.5 MG, UNK

REACTIONS (3)
  - MYOCARDIAL INFARCTION [None]
  - ARTHRALGIA [None]
  - DIZZINESS [None]
